FAERS Safety Report 18443671 (Version 1)
Quarter: 2020Q4

REPORT INFORMATION
  Report Type: Spontaneous
  Country: GR (occurrence: GR)
  Receive Date: 20201030
  Receipt Date: 20201030
  Transmission Date: 20210114
  Serious: Yes (Other)
  Sender: FDA-Public Use
  Company Number: GR-EMD SERONO-9193672

PATIENT
  Age: 38 Year
  Sex: Female

DRUGS (2)
  1. GONAL-F [Suspect]
     Active Substance: FOLLITROPIN
  2. GONAL-F [Suspect]
     Active Substance: FOLLITROPIN
     Indication: IN VITRO FERTILISATION

REACTIONS (9)
  - Mobility decreased [Unknown]
  - Syncope [Unknown]
  - Localised oedema [Unknown]
  - Insomnia [Unknown]
  - Ovarian hyperstimulation syndrome [Unknown]
  - Pyrexia [Recovered/Resolved]
  - Tissue discolouration [Unknown]
  - Screaming [Unknown]
  - Hypoaesthesia [Unknown]
